FAERS Safety Report 7848656-5 (Version None)
Quarter: 2011Q4

REPORT INFORMATION
  Report Type: 
  Country: None (occurrence: None)
  Receive Date: 20111026
  Receipt Date: 20111017
  Transmission Date: 20120403
  Serious: Yes (Hospitalization)
  Sender: FDA-Public Use
  Company Number: US-BIOGENIDEC-2010BI023907

PATIENT
  Age: 65 Year
  Sex: Female

DRUGS (2)
  1. AVONEX [Suspect]
     Indication: MULTIPLE SCLEROSIS
     Route: 030
  2. AVONEX [Suspect]
     Route: 030
     Dates: start: 20030805

REACTIONS (18)
  - KNEE ARTHROPLASTY [None]
  - MOBILITY DECREASED [None]
  - DIVERTICULITIS [None]
  - GASTROINTESTINAL DISORDER [None]
  - BALANCE DISORDER [None]
  - SWELLING FACE [None]
  - LYMPHADENOPATHY [None]
  - INNER EAR DISORDER [None]
  - FALL [None]
  - ABSCESS LIMB [None]
  - HYPERTENSION [None]
  - URINARY TRACT INFECTION [None]
  - ARTHRALGIA [None]
  - DRY THROAT [None]
  - DIZZINESS [None]
  - GROIN PAIN [None]
  - OEDEMA PERIPHERAL [None]
  - INITIAL INSOMNIA [None]
